FAERS Safety Report 7936341-0 (Version None)
Quarter: 2011Q4

REPORT INFORMATION
  Report Type: 
  Country: None (occurrence: None)
  Receive Date: 20111123
  Receipt Date: 20111108
  Transmission Date: 20120403
  Serious: Yes (Other)
  Sender: FDA-Public Use
  Company Number: US-SANOFI-AVENTIS-2011SA053509

PATIENT
  Age: 72 Year
  Sex: Female
  Weight: 54.09 kg

DRUGS (7)
  1. HYDROCHLOROTHIAZIDE [Concomitant]
     Indication: FLUID RETENTION
     Dates: start: 20110601
  2. CITALOPRAM HYDROBROMIDE [Concomitant]
     Indication: DEPRESSION
     Dosage: STARTED 3 TO 4 YEARS AGO
  3. ATORVASTATIN [Concomitant]
     Dosage: STARTED 8 TO 10 YEARS AGO
  4. ASPIRIN [Concomitant]
     Indication: TRANSIENT ISCHAEMIC ATTACK
     Dates: start: 20110601
  5. IBANDRONATE SODIUM [Concomitant]
     Indication: OSTEOPOROSIS
     Dosage: EVERY 3 MONTHS
     Route: 051
     Dates: start: 20100101
  6. RANITIDINE [Concomitant]
     Dosage: STARTED 3 YEARS AGO
     Dates: start: 20080101
  7. PLAVIX [Suspect]
     Indication: TRANSIENT ISCHAEMIC ATTACK
     Dosage: FOR 9-10 YEARS
     Route: 048
     Dates: start: 20010101

REACTIONS (8)
  - DRUG INEFFECTIVE [None]
  - DISORIENTATION [None]
  - TRANSIENT ISCHAEMIC ATTACK [None]
  - INCORRECT STORAGE OF DRUG [None]
  - CONFUSIONAL STATE [None]
  - ASTHENIA [None]
  - AMNESIA [None]
  - HYPOAESTHESIA [None]
